FAERS Safety Report 9849419 (Version 7)
Quarter: 2014Q2

REPORT INFORMATION
  Report Type: Spontaneous
  Country: US (occurrence: None)
  Receive Date: 20140124
  Receipt Date: 20140522
  Transmission Date: 20141212
  Serious: Yes (Hospitalization, Other)
  Sender: FDA-Public Use
  Company Number: ADR-2014-00082

PATIENT
  Age: 60 Year
  Sex: Female

DRUGS (3)
  1. BACLOFEN INTRATHECAL [Suspect]
     Indication: PAIN
  2. HYDROMORPHONE [Suspect]
     Indication: PAIN
  3. BUPIVACAINE [Suspect]
     Dosage: 5.663*/DAY

REACTIONS (36)
  - Sluggishness [None]
  - Asthenia [None]
  - Head injury [None]
  - Drug effect decreased [None]
  - Myalgia [None]
  - Vomiting [None]
  - Gastric disorder [None]
  - Feeling abnormal [None]
  - Flank pain [None]
  - Catheter site pain [None]
  - Headache [None]
  - Tremor [None]
  - Feeling abnormal [None]
  - Overdose [None]
  - Laceration [None]
  - Nausea [None]
  - Impaired gastric emptying [None]
  - Fall [None]
  - Feeling cold [None]
  - Blood pressure increased [None]
  - Back pain [None]
  - Road traffic accident [None]
  - Device leakage [None]
  - Insomnia [None]
  - Abasia [None]
  - Impaired driving ability [None]
  - Heart rate increased [None]
  - Tinnitus [None]
  - Dysarthria [None]
  - C-reactive protein increased [None]
  - Neuralgia [None]
  - Chest pain [None]
  - Radiation associated pain [None]
  - Tremor [None]
  - Burning sensation [None]
  - Migraine [None]
